FAERS Safety Report 4797250-1 (Version None)
Quarter: 2005Q4

REPORT INFORMATION
  Report Type: 
  Country: None (occurrence: None)
  Receive Date: 20051013
  Receipt Date: 20050929
  Transmission Date: 20060501
  Serious: Yes (Life-Threatening)
  Sender: FDA-Public Use
  Company Number: US-KINGPHARMUSA00001-K200501270

PATIENT
  Age: 71 Year
  Sex: Female

DRUGS (5)
  1. ALTACE [Suspect]
     Indication: HYPERTENSION
     Dosage: 5 MG, QD
     Route: 048
     Dates: start: 20050601, end: 20050601
  2. ALTACE [Suspect]
     Dosage: 2.5 MG, QD
     Route: 048
  3. HYDROCHLOROTHIAZIDE [Suspect]
     Indication: HYPERTENSION
     Dosage: 25 MG, QD
     Route: 048
     Dates: start: 20050601, end: 20050601
  4. PIRACETAM [Concomitant]
     Indication: TRANSIENT ISCHAEMIC ATTACK
     Dosage: 2,400 MG, UNK
     Route: 048
     Dates: start: 20050601
  5. ACETYLSALICYLATE LYSINE [Concomitant]
     Indication: TRANSIENT ISCHAEMIC ATTACK
     Dosage: 100 MG, UNK
     Route: 048
     Dates: start: 20050601

REACTIONS (5)
  - CEREBROVASCULAR ACCIDENT [None]
  - CONFUSIONAL STATE [None]
  - FEELING COLD [None]
  - HYPOTENSION [None]
  - PALLOR [None]
